FAERS Safety Report 25728104 (Version 1)
Quarter: 2025Q3

REPORT INFORMATION
  Report Type: Spontaneous
  Country: US (occurrence: US)
  Receive Date: 20250826
  Receipt Date: 20250826
  Transmission Date: 20251021
  Serious: No
  Sender: AMNEAL
  Company Number: US-AMNEAL PHARMACEUTICALS-2025-AMRX-02633

PATIENT
  Age: 62 Year
  Sex: Male
  Weight: 66.667 kg

DRUGS (3)
  1. CREXONT [Suspect]
     Active Substance: CARBIDOPA\LEVODOPA
     Indication: Parkinson^s disease
     Dosage: 02 CAPSULES (87.5/350 MG), 3X/DAY
     Route: 048
     Dates: start: 202504, end: 20250619
  2. CARBIDOPA\LEVODOPA [Suspect]
     Active Substance: CARBIDOPA\LEVODOPA
     Indication: Product used for unknown indication
     Route: 065
     Dates: start: 202411, end: 202507
  3. LEXAPRO [Concomitant]
     Active Substance: ESCITALOPRAM OXALATE
     Indication: Product used for unknown indication
     Route: 048
     Dates: start: 20250701

REACTIONS (8)
  - Speech disorder [Recovering/Resolving]
  - Gait inability [Recovering/Resolving]
  - Decubitus ulcer [Recovering/Resolving]
  - Bedridden [Recovering/Resolving]
  - Loss of personal independence in daily activities [Recovering/Resolving]
  - Tremor [Recovering/Resolving]
  - General physical health deterioration [Recovered/Resolved]
  - Product use issue [Unknown]

NARRATIVE: CASE EVENT DATE: 20250619
